FAERS Safety Report 25671552 (Version 2)
Quarter: 2025Q3

REPORT INFORMATION
  Report Type: Spontaneous
  Country: EU (occurrence: EU)
  Receive Date: 20250812
  Receipt Date: 20250820
  Transmission Date: 20251021
  Serious: Yes (Death, Hospitalization, Other)
  Sender: TEVA
  Company Number: EU-TEVA-VS-3360650

PATIENT
  Age: 72 Year
  Sex: Male

DRUGS (12)
  1. ABIRATERONE [Suspect]
     Active Substance: ABIRATERONE
     Indication: Hormone-refractory prostate cancer
     Route: 065
  2. LEUPROLIDE ACETATE [Suspect]
     Active Substance: LEUPROLIDE ACETATE
     Indication: Hormone-refractory prostate cancer
     Route: 065
  3. HYDROMORPHONE [Concomitant]
     Active Substance: HYDROMORPHONE
     Indication: Product used for unknown indication
     Route: 065
  4. ENZALUTAMIDE [Suspect]
     Active Substance: ENZALUTAMIDE
     Indication: Hormone-refractory prostate cancer
     Route: 065
  5. PANTOPRAZOLE [Concomitant]
     Active Substance: PANTOPRAZOLE
     Indication: Gastrooesophageal reflux disease
     Route: 065
  6. BISOPROLOL [Concomitant]
     Active Substance: BISOPROLOL
     Indication: Atrial fibrillation
     Route: 065
  7. PREGABALIN [Concomitant]
     Active Substance: PREGABALIN
     Indication: Product used for unknown indication
     Route: 065
  8. ROSUVASTATIN [Suspect]
     Active Substance: ROSUVASTATIN
     Indication: Hyperlipidaemia
     Route: 065
  9. EDOXABAN [Suspect]
     Active Substance: EDOXABAN
     Indication: Anticoagulant therapy
     Route: 065
  10. RELUGOLIX [Suspect]
     Active Substance: RELUGOLIX
     Indication: Hormone-refractory prostate cancer
     Route: 065
  11. DOCETAXEL [Suspect]
     Active Substance: DOCETAXEL
     Indication: Hormone-refractory prostate cancer
     Route: 065
     Dates: start: 2022
  12. CABAZITAXEL [Suspect]
     Active Substance: CABAZITAXEL
     Indication: Hormone-refractory prostate cancer
     Route: 065
     Dates: start: 2022

REACTIONS (3)
  - Acute kidney injury [Fatal]
  - Haematuria [Unknown]
  - Drug ineffective [Unknown]
